FAERS Safety Report 8756902 (Version 2)
Quarter: 2012Q4

REPORT INFORMATION
  Report Type: 
  Country: US (occurrence: US)
  Receive Date: 20120828
  Receipt Date: 20120903
  Transmission Date: 20130627
  Serious: Yes (Life-Threatening, Hospitalization, Disabling)
  Sender: FDA-Public Use
  Company Number: US-BAYER-2012-086705

PATIENT
  Age: 48 Year
  Sex: Female
  Weight: 68.3 kg

DRUGS (12)
  1. YAZ [Suspect]
     Dosage: UNK
  2. YASMIN [Suspect]
  3. OCELLA [Suspect]
  4. CLARITHROMYCIN [Concomitant]
     Dosage: 500 mg, UNK
     Dates: start: 20110425
  5. VENTOLIN INHALER [Concomitant]
     Dosage: UNK
     Dates: start: 20110425
  6. Z-PAK [Concomitant]
     Dosage: UNK
     Dates: start: 20110505
  7. CIPRO [Concomitant]
     Dosage: UNK
     Dates: start: 20110505
  8. BIAXIN [Concomitant]
     Dosage: UNK
     Dates: start: 20110505
  9. PREDNISONE [Concomitant]
     Dosage: 5 mg, UNK
     Dates: start: 20110505
  10. RESPIRATORY SYSTEM [Concomitant]
     Dosage: UNK
     Dates: start: 20110505
  11. BENZONATATE [Concomitant]
     Dosage: 200 mg, 3 times daily
     Dates: start: 20110505
  12. CLONAZEPAM [Concomitant]
     Dosage: 1 mg twice daily as needed
     Dates: start: 20110524

REACTIONS (9)
  - Deep vein thrombosis [None]
  - Pulmonary embolism [None]
  - Pain [None]
  - General physical health deterioration [None]
  - Anxiety [None]
  - Anhedonia [None]
  - Injury [None]
  - Emotional distress [None]
  - Pain [None]
